FAERS Safety Report 11535305 (Version 1)
Quarter: 2015Q3

REPORT INFORMATION
  Report Type: Spontaneous
  Country: US (occurrence: US)
  Receive Date: 20150903
  Receipt Date: 20150903
  Transmission Date: 20151125
  Serious: No
  Sender: FDA-Public Use
  Company Number: US-ELI_LILLY_AND_COMPANY-US201103008103

PATIENT
  Sex: Female

DRUGS (3)
  1. LANTUS [Concomitant]
     Active Substance: INSULIN GLARGINE
     Dosage: 14 U, EACH EVENING
     Dates: start: 2001
  2. HUMALOG [Suspect]
     Active Substance: INSULIN LISPRO
  3. LANTUS [Concomitant]
     Active Substance: INSULIN GLARGINE
     Indication: TYPE 2 DIABETES MELLITUS
     Dosage: 12 U, EACH MORNING
     Dates: start: 2001

REACTIONS (4)
  - Blood glucose increased [Unknown]
  - Confusional state [Unknown]
  - Dementia [Unknown]
  - Wrong drug administered [Unknown]
